FAERS Safety Report 4641286-8 (Version None)
Quarter: 2005Q2

REPORT INFORMATION
  Report Type: 
  Country: None (occurrence: None)
  Receive Date: 20050420
  Receipt Date: 20050420
  Transmission Date: 20051028
  Serious: Yes (Hospitalization)
  Sender: FDA-Public Use
  Company Number: None

PATIENT

DRUGS (1)
  1. LACTULOSE [Suspect]
     Dosage: 45 ML PO QD (DAILY)
     Route: 048

REACTIONS (8)
  - DEHYDRATION [None]
  - DIARRHOEA [None]
  - FREQUENT BOWEL MOVEMENTS [None]
  - HEADACHE [None]
  - HYPOKALAEMIA [None]
  - JAUNDICE [None]
  - NAUSEA [None]
  - VOMITING [None]
